FAERS Safety Report 8367937-2 (Version None)
Quarter: 2012Q2

REPORT INFORMATION
  Report Type: 
  Country: None (occurrence: None)
  Receive Date: 20120517
  Receipt Date: 20120508
  Transmission Date: 20120825
  Serious: Yes (Hospitalization)
  Sender: FDA-Public Use
  Company Number: US-JNJFOC-20111107593

PATIENT
  Sex: Female

DRUGS (2)
  1. ALL OTHER THERAPEUTIC PRODUCT [Concomitant]
     Indication: POSTOPERATIVE ADHESION
     Route: 050
  2. EVICEL [Suspect]
     Indication: POSTOPERATIVE ADHESION
     Route: 050

REACTIONS (5)
  - OFF LABEL USE [None]
  - WHITE BLOOD CELL COUNT DECREASED [None]
  - PROCEDURAL PAIN [None]
  - IMPAIRED WORK ABILITY [None]
  - POSTOPERATIVE ADHESION [None]
